FAERS Safety Report 11656803 (Version 1)
Quarter: 2015Q4

REPORT INFORMATION
  Report Type: Spontaneous
  Country: US (occurrence: US)
  Receive Date: 20151023
  Receipt Date: 20151023
  Transmission Date: 20160304
  Serious: Yes (Life-Threatening, Hospitalization, Other)
  Sender: FDA-Public Use
  Company Number: US-ACTAVIS-2015-22942

PATIENT
  Age: 23 Year
  Sex: Male

DRUGS (3)
  1. SODIUM BICARBONATE (UNKNOWN) [Suspect]
     Active Substance: SODIUM BICARBONATE
     Dosage: 100 MEQ, UNKNOWN
     Route: 042
  2. DIPHENHYDRAMINE (WATSON LABORATORIES) [Suspect]
     Active Substance: DIPHENHYDRAMINE
     Indication: OVERDOSE
     Dosage: 2000-2500 MG TOTAL
     Route: 048
  3. SODIUM BICARBONATE (UNKNOWN) [Suspect]
     Active Substance: SODIUM BICARBONATE
     Indication: TOXICITY TO VARIOUS AGENTS
     Dosage: 500 MEQ, UNKNOWN
     Route: 042

REACTIONS (13)
  - Ventricular extrasystoles [Recovered/Resolved]
  - Depressed level of consciousness [Recovered/Resolved]
  - Hypotension [Recovered/Resolved]
  - Lactic acidosis [Recovered/Resolved]
  - Electrocardiogram QT prolonged [Recovered/Resolved]
  - Dry skin [Recovered/Resolved]
  - Blood glucose increased [Unknown]
  - Tachycardia [Recovered/Resolved]
  - Hypokalaemia [Recovered/Resolved]
  - Generalised tonic-clonic seizure [Recovered/Resolved]
  - Unresponsive to stimuli [Recovered/Resolved]
  - Mydriasis [Recovered/Resolved]
  - Overdose [Recovered/Resolved]
